FAERS Safety Report 16543722 (Version 1)
Quarter: 2019Q3

REPORT INFORMATION
  Report Type: Spontaneous
  Country: US (occurrence: US)
  Receive Date: 20190709
  Receipt Date: 20190709
  Transmission Date: 20191004
  Serious: No
  Sender: FDA-Public Use
  Company Number: US-BIOGEN-2019BI00760258

PATIENT
  Age: 57 Year
  Sex: Female

DRUGS (1)
  1. TECFIDERA [Suspect]
     Active Substance: DIMETHYL FUMARATE
     Indication: MULTIPLE SCLEROSIS
     Route: 048
     Dates: start: 20180119

REACTIONS (4)
  - Flushing [Unknown]
  - Dysphagia [Unknown]
  - Dizziness [Unknown]
  - Sinusitis [Unknown]

NARRATIVE: CASE EVENT DATE: 20190621
